FAERS Safety Report 12844631 (Version 1)
Quarter: 2016Q4

REPORT INFORMATION
  Report Type: Spontaneous
  Country: US (occurrence: US)
  Receive Date: 20161013
  Receipt Date: 20161013
  Transmission Date: 20170207
  Serious: No
  Sender: FDA-Public Use
  Company Number: US-ROCHE-1653843

PATIENT
  Sex: Male

DRUGS (6)
  1. BETA CAROTENE [Concomitant]
  2. ATENOLOL. [Concomitant]
     Active Substance: ATENOLOL
  3. ZELBORAF [Suspect]
     Active Substance: VEMURAFENIB
     Indication: MALIGNANT MELANOMA
     Route: 048
     Dates: start: 20151022
  4. FINASTERIDE. [Concomitant]
     Active Substance: FINASTERIDE
  5. FISH OIL [Concomitant]
     Active Substance: FISH OIL
  6. FOLIC ACID. [Concomitant]
     Active Substance: FOLIC ACID

REACTIONS (2)
  - Drug intolerance [Unknown]
  - Arthralgia [Not Recovered/Not Resolved]
